FAERS Safety Report 6661268-4 (Version None)
Quarter: 2010Q1

REPORT INFORMATION
  Report Type: 
  Country: None (occurrence: None)
  Receive Date: 20100331
  Receipt Date: 20100322
  Transmission Date: 20100710
  Serious: Yes (Death, Hospitalization, Disabling)
  Sender: FDA-Public Use
  Company Number: GB-SANOFI-AVENTIS-F01200800914

PATIENT
  Age: 59 Year
  Sex: Female

DRUGS (5)
  1. OXALIPLATIN [Suspect]
     Indication: COLON CANCER
     Route: 041
     Dates: start: 20050803, end: 20050803
  2. CAPECITABINE [Suspect]
     Indication: COLON CANCER
     Dosage: DOSE TEXT: BID FOR 2 WEEKS (D1-14), Q3W
     Route: 048
     Dates: start: 20050803
  3. BEVACIZUMAB [Suspect]
     Indication: COLON CANCER
     Route: 041
     Dates: start: 20050803, end: 20050803
  4. ACETAMINOPHEN AND CODEINE PHOSPHATE [Concomitant]
  5. DICLOFENAC [Concomitant]

REACTIONS (2)
  - DIARRHOEA [None]
  - PERIPHERAL SENSORY NEUROPATHY [None]
